FAERS Safety Report 17098172 (Version 1)
Quarter: 2020Q3

REPORT INFORMATION
  Report Type: Spontaneous
  Country: KP (occurrence: KP)
  Receive Date: 20191202
  Receipt Date: 20191202
  Transmission Date: 20201105
  Serious: Yes (Other)
  Sender: FDA-Public Use
  Company Number: KP-ELITE LABORATORIES INC.-2019ELT00047

PATIENT
  Age: 27 Year
  Sex: Female

DRUGS (3)
  1. UNSPECIFIED HERBAL LAXATIVES [Concomitant]
     Route: 065
  2. EPHEDRINE. [Suspect]
     Active Substance: EPHEDRINE
     Route: 065
  3. PHENDIMETRAZINE. [Suspect]
     Active Substance: PHENDIMETRAZINE TARTRATE
     Route: 065

REACTIONS (2)
  - Myopia [Recovered/Resolved]
  - Angle closure glaucoma [Recovered/Resolved]
